FAERS Safety Report 25680503 (Version 3)
Quarter: 2025Q3

REPORT INFORMATION
  Report Type: Spontaneous
  Country: US (occurrence: US)
  Receive Date: 20250814
  Receipt Date: 20250904
  Transmission Date: 20251020
  Serious: Yes (Other)
  Sender: RADIUS PHARM
  Company Number: US-RADIUS HEALTH INC.-US-RADIUS-25051710

PATIENT
  Age: 64 Year
  Sex: Female

DRUGS (3)
  1. TYMLOS [Suspect]
     Active Substance: ABALOPARATIDE
     Indication: Osteoporosis
     Dosage: 80 MICROGRAM, QD
     Route: 058
     Dates: start: 20230101
  2. TYMLOS [Suspect]
     Active Substance: ABALOPARATIDE
     Route: 058
  3. TYMLOS [Suspect]
     Active Substance: ABALOPARATIDE
     Route: 058

REACTIONS (11)
  - Malignant melanoma [Not Recovered/Not Resolved]
  - Device defective [Unknown]
  - Off label use [Unknown]
  - Device malfunction [Unknown]
  - Incorrect dose administered [Unknown]
  - Device failure [Unknown]
  - Drug dose omission by device [Unknown]
  - Drug dose omission by device [Unknown]
  - Device failure [Unknown]
  - Drug dose omission by device [Unknown]
  - Device malfunction [Unknown]

NARRATIVE: CASE EVENT DATE: 20250301
